FAERS Safety Report 10254593 (Version 2)
Quarter: 2014Q3

REPORT INFORMATION
  Report Type: Spontaneous
  Country: JP (occurrence: JP)
  Receive Date: 20140624
  Receipt Date: 20140725
  Transmission Date: 20150326
  Serious: Yes (Hospitalization)
  Sender: FDA-Public Use
  Company Number: PHHY2014JP076085

PATIENT
  Age: 77 Year
  Sex: Female

DRUGS (3)
  1. SEEBRI BREEZHALER [Suspect]
     Active Substance: GLYCOPYRRONIUM
     Indication: CHRONIC OBSTRUCTIVE PULMONARY DISEASE
     Dosage: 50 UG, DAILY
     Route: 055
  2. ONBREZ [Suspect]
     Active Substance: INDACATEROL
     Indication: CHRONIC OBSTRUCTIVE PULMONARY DISEASE
     Dosage: 150 UG, DAILY
     Route: 055
  3. ALVESCO [Concomitant]
     Active Substance: CICLESONIDE
     Route: 055

REACTIONS (15)
  - Pleural effusion [Recovered/Resolved]
  - Cough [Recovered/Resolved]
  - Heart rate increased [Recovered/Resolved]
  - Atrial fibrillation [Recovered/Resolved]
  - Inferior vena caval occlusion [Recovered/Resolved]
  - Brain natriuretic peptide increased [Recovered/Resolved]
  - Ascites [Recovered/Resolved]
  - Malaise [Recovered/Resolved]
  - Dyspnoea [Recovered/Resolved]
  - Oedema peripheral [Recovered/Resolved]
  - Cardiac failure [Recovered/Resolved]
  - Cardiomegaly [Recovered/Resolved]
  - Weight increased [Recovered/Resolved]
  - Blood albumin decreased [Recovered/Resolved]
  - Left atrial dilatation [Recovered/Resolved]

NARRATIVE: CASE EVENT DATE: 201402
